FAERS Safety Report 7146173-1 (Version None)
Quarter: 2010Q4

REPORT INFORMATION
  Report Type: 
  Country: None (occurrence: None)
  Receive Date: 20101208
  Receipt Date: 20101201
  Transmission Date: 20110411
  Serious: Yes (Hospitalization)
  Sender: FDA-Public Use
  Company Number: US-US-EMD SERONO, INC.-7024113

PATIENT
  Sex: Female

DRUGS (3)
  1. REBIF [Suspect]
     Indication: PRODUCT USED FOR UNKNOWN INDICATION
     Dates: start: 20100809
  2. REBIF [Suspect]
     Route: 058
     Dates: start: 20100101, end: 20101001
  3. PROVIGIL [Suspect]
     Dates: start: 20101018, end: 20101001

REACTIONS (3)
  - CHEST PAIN [None]
  - DYSPNOEA [None]
  - MALAISE [None]
